FAERS Safety Report 24611501 (Version 1)
Quarter: 2024Q4

REPORT INFORMATION
  Report Type: Spontaneous
  Country: RU (occurrence: RU)
  Receive Date: 20241113
  Receipt Date: 20241113
  Transmission Date: 20250115
  Serious: Yes (Hospitalization)
  Sender: SANDOZ
  Company Number: RU-SANDOZ-SDZ2024RU093631

PATIENT
  Sex: Female

DRUGS (3)
  1. AMOXICILLIN\CLAVULANATE POTASSIUM [Suspect]
     Active Substance: AMOXICILLIN\CLAVULANATE POTASSIUM
     Indication: Lymphadenitis
     Dosage: 1 DF, BID, 875/125 IS PRESCRIBED FOR 1 TAB 2 TIMES A DAY
     Route: 065
  2. METHOTREXATE [Suspect]
     Active Substance: METHOTREXATE
     Indication: Rheumatoid arthritis
     Dosage: WITH DOSE ESCALATION UP TO 25 MG/WEEK.
     Route: 065
  3. OLOKIZUMAB [Suspect]
     Active Substance: OLOKIZUMAB
     Indication: Product used for unknown indication
     Dosage: 64 MG AT 4 WEEKS.
     Route: 065

REACTIONS (4)
  - Lymphadenitis [Unknown]
  - Pain in extremity [Unknown]
  - Pyrexia [Unknown]
  - Drug ineffective [Unknown]

NARRATIVE: CASE EVENT DATE: 20240901
